FAERS Safety Report 9994591 (Version 2)
Quarter: 2014Q2

REPORT INFORMATION
  Report Type: Spontaneous
  Country: FR (occurrence: FR)
  Receive Date: 20140311
  Receipt Date: 20140416
  Transmission Date: 20141212
  Serious: Yes (Other)
  Sender: FDA-Public Use
  Company Number: FR-BRISTOL-MYERS SQUIBB COMPANY-20397790

PATIENT
  Age: 82 Year
  Sex: Male

DRUGS (3)
  1. YERVOY [Suspect]
     Indication: METASTATIC MALIGNANT MELANOMA
     Route: 042
     Dates: start: 20130917, end: 20131119
  2. PACLITAXEL [Suspect]
     Indication: METASTATIC MALIGNANT MELANOMA
     Dosage: JUN-2013 TO SEP-2013?02-JAN-2014 TO ONGOING
     Dates: start: 201306
  3. CARBOPLATINE [Suspect]
     Indication: METASTATIC MALIGNANT MELANOMA
     Dosage: JUN-2013 TO SEP-2013?02-JAN-2014 TO ONGOING
     Dates: start: 201306

REACTIONS (1)
  - Organising pneumonia [Recovering/Resolving]
